FAERS Safety Report 6278732-2 (Version None)
Quarter: 2009Q3

REPORT INFORMATION
  Report Type: 
  Country: None (occurrence: None)
  Receive Date: 20090721
  Receipt Date: 20090710
  Transmission Date: 20100115
  Serious: Yes (Hospitalization)
  Sender: FDA-Public Use
  Company Number: 2008AL012003

PATIENT
  Age: 63 Year
  Sex: Male

DRUGS (11)
  1. DIGOXIN [Suspect]
     Indication: CARDIAC DISORDER
     Dosage: 0.125MG, DAILY, PO
     Route: 048
     Dates: start: 20080301, end: 20080501
  2. FOLIC ACID [Concomitant]
  3. LACTULOSE [Concomitant]
  4. METOPROLOL SUCCINATE [Concomitant]
  5. MICONAZOLE [Concomitant]
  6. CAPTOPRIL [Concomitant]
  7. NIFEDIPINE [Concomitant]
  8. ENALAPRIL MALEATE [Concomitant]
  9. ACETIC ACID [Concomitant]
  10. FUROSEMIDE [Concomitant]
  11. ASPIRIN [Concomitant]

REACTIONS (14)
  - ATRIAL FLUTTER [None]
  - BLOOD PRESSURE INCREASED [None]
  - CHRONIC OBSTRUCTIVE PULMONARY DISEASE [None]
  - COUGH [None]
  - DELIRIUM [None]
  - ECONOMIC PROBLEM [None]
  - EFFUSION [None]
  - FIBROSIS [None]
  - HYPONATRAEMIA [None]
  - INJURY [None]
  - MASS [None]
  - OEDEMA PERIPHERAL [None]
  - PULMONARY MASS [None]
  - SICK SINUS SYNDROME [None]
